FAERS Safety Report 14210902 (Version 1)
Quarter: 2017Q4

REPORT INFORMATION
  Report Type: Spontaneous
  Country: US (occurrence: US)
  Receive Date: 20171121
  Receipt Date: 20171121
  Transmission Date: 20180321
  Serious: Yes (Death, Hospitalization, Other)
  Sender: FDA-Public Use
  Company Number: US-NOVOPROD-573054

PATIENT
  Age: 50 Year
  Sex: Male
  Weight: 199.55 kg

DRUGS (1)
  1. LEVEMIR [Suspect]
     Active Substance: INSULIN DETEMIR
     Indication: TYPE 2 DIABETES MELLITUS
     Dosage: SLIDING SCALE
     Route: 058

REACTIONS (3)
  - Cellulitis [Unknown]
  - Septic shock [Fatal]
  - Localised infection [Unknown]

NARRATIVE: CASE EVENT DATE: 201711
